FAERS Safety Report 10180339 (Version 1)
Quarter: 2014Q2

REPORT INFORMATION
  Report Type: Spontaneous
  Country: US (occurrence: US)
  Receive Date: 20140519
  Receipt Date: 20140519
  Transmission Date: 20141212
  Serious: No
  Sender: FDA-Public Use
  Company Number: US-AMGEN INC.-USASP2013072071

PATIENT
  Age: 76 Year
  Sex: Female

DRUGS (6)
  1. PROLIA [Suspect]
     Indication: OSTEOPOROSIS POSTMENOPAUSAL
     Dosage: UNK
     Route: 065
     Dates: start: 20120517
  2. COUMADINE [Concomitant]
     Dosage: UNK
     Route: 065
  3. MULTIVITAMIN                       /07504101/ [Concomitant]
     Dosage: UNK
     Route: 065
  4. CALCIUM D                          /01483701/ [Concomitant]
     Dosage: UNK
     Route: 065
  5. COQ10                              /00517201/ [Concomitant]
     Dosage: UNK
     Route: 065
  6. VITAMIN C                          /00008001/ [Concomitant]
     Dosage: UNK
     Route: 065

REACTIONS (1)
  - Tooth infection [Unknown]
